FAERS Safety Report 7151616-3 (Version None)
Quarter: 2010Q4

REPORT INFORMATION
  Report Type: 
  Country: None (occurrence: None)
  Receive Date: 20101124
  Receipt Date: 20101112
  Transmission Date: 20110411
  Serious: Yes (Other)
  Sender: FDA-Public Use
  Company Number: 011887

PATIENT
  Age: 17 Year
  Sex: Male

DRUGS (5)
  1. BUSULFEX [Suspect]
     Indication: BONE MARROW CONDITIONING REGIMEN
     Dosage: Q6HR, INTRAVENOUS
     Route: 042
  2. CAMPATH [Concomitant]
  3. FLUDARABINE PHOSPHATE [Concomitant]
  4. METHOTREXATE [Concomitant]
  5. CYCLOSPORINE [Concomitant]

REACTIONS (8)
  - CYTOMEGALOVIRUS INFECTION [None]
  - MOBILITY DECREASED [None]
  - MOEBIUS II SYNDROME [None]
  - MUCOSAL INFLAMMATION [None]
  - MUSCULAR WEAKNESS [None]
  - OPHTHALMOPLEGIA [None]
  - STAPHYLOCOCCAL BACTERAEMIA [None]
  - STOMATITIS [None]
